FAERS Safety Report 5489364-8 (Version None)
Quarter: 2007Q4

REPORT INFORMATION
  Report Type: 
  Country: None (occurrence: None)
  Receive Date: 20071005
  Receipt Date: 20070605
  Transmission Date: 20080405
  Serious: No
  Sender: FDA-Public Use
  Company Number: PHEH2007US06922

PATIENT
  Age: 64 Year
  Sex: Male
  Weight: 93.4 kg

DRUGS (10)
  1. TEKTURNA [Suspect]
     Indication: HYPERTENSION
     Dosage: 150 MG, QD; 0.1 MG,QD
     Dates: start: 20070502
  2. TEKTURNA [Suspect]
     Indication: HYPERTENSION
     Dosage: 150 MG, QD; 0.1 MG,QD
     Dates: start: 20070502
  3. CLONIDINE [Suspect]
     Indication: HYPERTENSION
     Dosage: 0.1 MG, QD
     Dates: end: 20070501
  4. CLONIDINE [Suspect]
     Indication: HYPERTENSION
     Dosage: 0.1 MG, QD
     Dates: start: 20070502
  5. LOTREL [Concomitant]
  6. HYDRALAZINE HCL [Concomitant]
  7. DIOVAN [Concomitant]
  8. ALLOPURINOL [Concomitant]
  9. TOPROL-XL [Concomitant]
  10. ASPIRIN [Concomitant]

REACTIONS (5)
  - BLOOD PRESSURE INCREASED [None]
  - DRUG INTERACTION [None]
  - EPINEPHRINE INCREASED [None]
  - HEART RATE INCREASED [None]
  - HOT FLUSH [None]
